FAERS Safety Report 4431722-4 (Version None)
Quarter: 2004Q3

REPORT INFORMATION
  Report Type: 
  Country: None (occurrence: None)
  Receive Date: 20040820
  Receipt Date: 20040820
  Transmission Date: 20050211
  Serious: Yes (Hospitalization, Other)
  Sender: FDA-Public Use
  Company Number: None

PATIENT
  Age: 66 Year
  Sex: Male
  Weight: 93.1 kg

DRUGS (6)
  1. INTEGRILIN [Suspect]
     Indication: ANTIPLATELET THERAPY
     Dosage: 2 (8.5 ML BOLUSES) 7.5 ML/HR IV
     Route: 042
     Dates: start: 20040812, end: 20040813
  2. HEPARIN [Suspect]
     Dosage: 4, 660 UNIT BOLUS
     Route: 040
     Dates: start: 20040812
  3. CEFAZOLIN [Concomitant]
  4. ACETYLCYSTEINE [Concomitant]
  5. PEPCID [Concomitant]
  6. CLOPIDOGREL [Concomitant]

REACTIONS (2)
  - HAEMATOMA [None]
  - WOUND SECRETION [None]
